FAERS Safety Report 12265631 (Version 1)
Quarter: 2016Q2

REPORT INFORMATION
  Report Type: Spontaneous
  Country: GB (occurrence: GB)
  Receive Date: 20160413
  Receipt Date: 20160413
  Transmission Date: 20160815
  Serious: Yes (Life-Threatening, Hospitalization)
  Sender: FDA-Public Use
  Company Number: GB-TEVA-650164ACC

PATIENT
  Age: 76 Year
  Sex: Male
  Weight: 100 kg

DRUGS (15)
  1. ACLIDINIUM [Concomitant]
     Active Substance: ACLIDINIUM BROMIDE
     Route: 055
  2. ASPIRIN. [Concomitant]
     Active Substance: ASPIRIN
  3. LYMECYCLINE [Concomitant]
     Active Substance: LYMECYCLINE
  4. LEVOTHYROXINE. [Concomitant]
     Active Substance: LEVOTHYROXINE
  5. TRAMADOL. [Concomitant]
     Active Substance: TRAMADOL
  6. SPIRONOLACTONE. [Concomitant]
     Active Substance: SPIRONOLACTONE
  7. SENNA [Concomitant]
     Active Substance: SENNA LEAF\SENNOSIDES\SENNOSIDES A AND B
  8. CITALOPRAM [Suspect]
     Active Substance: CITALOPRAM HYDROBROMIDE
     Dosage: 20 MILLIGRAM DAILY;
  9. IRON [Concomitant]
     Active Substance: IRON
  10. ATORVASTATIN [Concomitant]
     Active Substance: ATORVASTATIN
  11. SALBUTAMOL [Concomitant]
     Active Substance: ALBUTEROL
  12. DOMPERIDONE [Suspect]
     Active Substance: DOMPERIDONE
     Dosage: THREE TIME A DAY
     Dates: start: 2015
  13. AZITHROMYCIN ANHYDROUS. [Concomitant]
     Active Substance: AZITHROMYCIN ANHYDROUS
     Dosage: 250 MILLIGRAM DAILY;
  14. FOLIC ACID. [Concomitant]
     Active Substance: FOLIC ACID
  15. HYDROCORTISONE. [Concomitant]
     Active Substance: HYDROCORTISONE

REACTIONS (3)
  - Chronic obstructive pulmonary disease [Recovered/Resolved]
  - Back pain [Recovered/Resolved]
  - Bundle branch block left [Recovered/Resolved]

NARRATIVE: CASE EVENT DATE: 20160301
